FAERS Safety Report 6620540-4 (Version None)
Quarter: 2010Q1

REPORT INFORMATION
  Report Type: 
  Country: None (occurrence: None)
  Receive Date: 20100309
  Receipt Date: 20100303
  Transmission Date: 20100710
  Serious: Yes (Other)
  Sender: FDA-Public Use
  Company Number: US-ELI_LILLY_AND_COMPANY-US201003001163

PATIENT
  Age: 32 Year
  Sex: Female

DRUGS (3)
  1. HUMALOG [Suspect]
     Indication: DIABETES MELLITUS
     Dates: start: 20010101
  2. LANTUS [Concomitant]
  3. NOVOLOG [Concomitant]

REACTIONS (10)
  - ABDOMINAL DISCOMFORT [None]
  - BLOOD GLUCOSE DECREASED [None]
  - FALL [None]
  - HYPOGLYCAEMIC SEIZURE [None]
  - NECK INJURY [None]
  - PROCEDURAL COMPLICATION [None]
  - ROAD TRAFFIC ACCIDENT [None]
  - TONGUE INJURY [None]
  - WEIGHT INCREASED [None]
  - WRIST FRACTURE [None]
